FAERS Safety Report 7516395-6 (Version None)
Quarter: 2011Q2

REPORT INFORMATION
  Report Type: 
  Country: None (occurrence: None)
  Receive Date: 20110428
  Receipt Date: 20100811
  Transmission Date: 20111010
  Serious: Yes (Other)
  Sender: FDA-Public Use
  Company Number: THYM-1001773

PATIENT
  Age: 68 Year
  Sex: Male

DRUGS (6)
  1. CELLCEPT [Concomitant]
  2. THYMOGLOBULIN [Suspect]
     Indication: PROPHYLAXIS AGAINST TRANSPLANT REJECTION
     Dosage: INTRAVENOUS
     Route: 042
     Dates: start: 20100621, end: 20100624
  3. VALCYTE [Concomitant]
  4. SEPTRA DS [Concomitant]
  5. CIPRO [Concomitant]
  6. FLUCONAZOLE [Concomitant]

REACTIONS (1)
  - LEUKOPENIA [None]
